FAERS Safety Report 9290894 (Version 1)
Quarter: 2013Q2

REPORT INFORMATION
  Report Type: Spontaneous
  Country: US (occurrence: US)
  Receive Date: 20130515
  Receipt Date: 20130515
  Transmission Date: 20140414
  Serious: Yes (Other)
  Sender: FDA-Public Use
  Company Number: PHEH2013US010580

PATIENT
  Sex: Male

DRUGS (6)
  1. EXELON PATCH [Suspect]
     Dosage: 4.6 MG, UNK
     Route: 062
  2. TAMSULOSIN [Concomitant]
     Dosage: UNK UKN, UNK
  3. SPIRIVA [Concomitant]
     Dosage: UNK UKN, UNK
  4. ALBUTEROL [Concomitant]
     Dosage: UNK UKN, UNK
  5. SYMBICORT [Concomitant]
     Dosage: UNK UKN, UNK
  6. VITAMIN D [Concomitant]
     Dosage: UNK UKN, UNK

REACTIONS (3)
  - Nightmare [Unknown]
  - Feeling abnormal [Unknown]
  - Fall [Unknown]
